FAERS Safety Report 9628895 (Version 1)
Quarter: 2013Q4

REPORT INFORMATION
  Report Type: Spontaneous
  Country: US (occurrence: US)
  Receive Date: 20131017
  Receipt Date: 20131017
  Transmission Date: 20140711
  Serious: Yes (Other)
  Sender: FDA-Public Use
  Company Number: PHEH2013US021371

PATIENT
  Sex: Male

DRUGS (1)
  1. DONEPEZIL [Suspect]
     Dosage: 5 MG, QD

REACTIONS (5)
  - Speech disorder [Unknown]
  - Delusion [Unknown]
  - Feeling abnormal [Unknown]
  - Memory impairment [Unknown]
  - Agitation [Unknown]
